FAERS Safety Report 15650251 (Version 4)
Quarter: 2019Q2

REPORT INFORMATION
  Report Type: Spontaneous
  Country: US (occurrence: US)
  Receive Date: 20181123
  Receipt Date: 20190620
  Transmission Date: 20190711
  Serious: Yes (Other)
  Sender: FDA-Public Use
  Company Number: US-PFIZER INC-2018482754

PATIENT
  Age: 63 Year
  Sex: Male
  Weight: 105.21 kg

DRUGS (9)
  1. DEXTROAMPHET SACCHARAT, AMPHET ASPARTATE, DEXTROAMPHET SULFATE AND AMPHET SULFAT [Concomitant]
     Active Substance: AMPHETAMINE ASPARTATE\AMPHETAMINE SULFATE\DEXTROAMPHETAMINE SACCHARATE\DEXTROAMPHETAMINE SULFATE
     Dosage: 10 MG, UNK
  2. BOSULIF [Suspect]
     Active Substance: BOSUTINIB MONOHYDRATE
     Indication: CHRONIC MYELOID LEUKAEMIA
     Dosage: 500 MG, DAILY
     Route: 048
  3. BOSULIF [Suspect]
     Active Substance: BOSUTINIB MONOHYDRATE
     Dosage: 500 MG, 1X/DAY
     Route: 048
     Dates: start: 20190306
  4. HYDROCODONE/ACETAMINOPHEN [Concomitant]
     Active Substance: ACETAMINOPHEN\HYDROCODONE
     Dosage: UNK (10MG-32)
  5. CELECOXIB. [Concomitant]
     Active Substance: CELECOXIB
     Dosage: 200 MG, UNK
  6. ADVIL [IBUPROFEN] [Concomitant]
     Active Substance: IBUPROFEN
     Dosage: UNK
  7. VITAMIN B12 [Concomitant]
     Active Substance: CYANOCOBALAMIN
     Dosage: UNK
  8. BOSULIF [Suspect]
     Active Substance: BOSUTINIB MONOHYDRATE
     Dosage: 200 MG, DAILY
     Route: 048
     Dates: start: 20190306
  9. TRIAMCINOLONE ACETONIDE. [Concomitant]
     Active Substance: TRIAMCINOLONE ACETONIDE
     Dosage: UNK

REACTIONS (21)
  - Diarrhoea [Recovering/Resolving]
  - Fatigue [Recovering/Resolving]
  - Muscle spasms [Recovering/Resolving]
  - Back pain [Recovering/Resolving]
  - Pain [Unknown]
  - Paraesthesia [Unknown]
  - Arthralgia [Recovering/Resolving]
  - Malaise [Unknown]
  - Hypoaesthesia [Unknown]
  - Nephrolithiasis [Unknown]
  - Headache [Recovering/Resolving]
  - Myalgia [Recovering/Resolving]
  - Blood pressure increased [Unknown]
  - Pruritus [Recovering/Resolving]
  - Vomiting [Recovering/Resolving]
  - Insomnia [Recovering/Resolving]
  - Dehydration [Recovering/Resolving]
  - Rash [Recovering/Resolving]
  - Nausea [Recovering/Resolving]
  - Rash macular [Recovering/Resolving]
  - Dizziness [Recovering/Resolving]

NARRATIVE: CASE EVENT DATE: 20190306
